FAERS Safety Report 22329068 (Version 2)
Quarter: 2023Q2

REPORT INFORMATION
  Report Type: Spontaneous
  Country: JP (occurrence: None)
  Receive Date: 20230517
  Receipt Date: 20230524
  Transmission Date: 20230722
  Serious: No
  Sender: FDA-Public Use
  Company Number: 2023A110559

PATIENT
  Age: 79 Year
  Sex: Female

DRUGS (2)
  1. LYNPARZA [Suspect]
     Active Substance: OLAPARIB
     Indication: Malignant peritoneal neoplasm
     Route: 048
  2. LYNPARZA [Suspect]
     Active Substance: OLAPARIB
     Indication: Malignant peritoneal neoplasm
     Dosage: DOSE UNKNOWN
     Route: 048

REACTIONS (1)
  - Renal impairment [Unknown]
